FAERS Safety Report 4956848-8 (Version None)
Quarter: 2006Q1

REPORT INFORMATION
  Report Type: 
  Country: None (occurrence: None)
  Receive Date: 20060323
  Receipt Date: 20060310
  Transmission Date: 20060701
  Serious: Yes (Hospitalization)
  Sender: FDA-Public Use
  Company Number: 2006-BP-02752RO

PATIENT
  Age: 47 Year
  Sex: Male

DRUGS (11)
  1. LITHIUM CARBONATE [Suspect]
     Indication: SCHIZOAFFECTIVE DISORDER
     Dosage: 450  MG BID (450 MG)
  2. ZIPRASIDONE HCL [Suspect]
     Indication: AGITATION
     Dosage: 20 MG PRN ACUTE AGITATION (20 MG), IM
     Route: 030
  3. DIVALPROEX SODIUM [Suspect]
     Indication: SCHIZOAFFECTIVE DISORDER
     Dosage: 750 MG/DAY PO
     Route: 048
  4. LORAZEPAM [Suspect]
     Indication: AGITATION
     Dosage: 2 MG X 10 DOSES OVER 4 DAYS (AS REQUIRED), IM
     Route: 030
  5. LOSARTAN POTASSIUM [Concomitant]
  6. IBUPROFEN [Concomitant]
  7. FUROSEMIDE [Concomitant]
  8. DIPHENHYDRAMINE HCL [Concomitant]
  9. ACETAMINOPHEN [Concomitant]
  10. IPRATROPIUM BROMIDE [Concomitant]
  11. FLUNISOLIDE (FLUNISOLIDE) [Concomitant]

REACTIONS (29)
  - ABASIA [None]
  - AGITATION [None]
  - ALANINE AMINOTRANSFERASE INCREASED [None]
  - ANTIPSYCHOTIC DRUG LEVEL INCREASED [None]
  - ASPARTATE AMINOTRANSFERASE INCREASED [None]
  - BLOOD CREATINE PHOSPHOKINASE INCREASED [None]
  - BLOOD CREATININE INCREASED [None]
  - BLOOD IRON DECREASED [None]
  - BLOOD POTASSIUM INCREASED [None]
  - BLOOD SODIUM INCREASED [None]
  - CONDITION AGGRAVATED [None]
  - DIABETES INSIPIDUS [None]
  - DRUG INEFFECTIVE [None]
  - DRUG LEVEL BELOW THERAPEUTIC [None]
  - DYSPNOEA [None]
  - HYPERTHERMIA [None]
  - HYPOTENSION [None]
  - INFECTION [None]
  - LOSS OF CONSCIOUSNESS [None]
  - MANIA [None]
  - MENTAL STATUS CHANGES [None]
  - MYOGLOBINURIA [None]
  - NEUROLEPTIC MALIGNANT SYNDROME [None]
  - NO THERAPEUTIC RESPONSE [None]
  - RENAL DISORDER [None]
  - SEPSIS [None]
  - SOMNOLENCE [None]
  - TACHYPNOEA [None]
  - WHITE BLOOD CELL COUNT INCREASED [None]
